FAERS Safety Report 21739688 (Version 1)
Quarter: 2022Q4

REPORT INFORMATION
  Report Type: Spontaneous
  Country: US (occurrence: None)
  Receive Date: 20221215
  Receipt Date: 20221215
  Transmission Date: 20230113
  Serious: No
  Sender: FDA-Public Use
  Company Number: None

PATIENT
  Sex: Male

DRUGS (1)
  1. TALTZ [Suspect]
     Active Substance: IXEKIZUMAB
     Indication: Spinal osteoarthritis
     Dosage: FREQUENCY : MONTHLY;?
     Route: 058
     Dates: start: 20220727

REACTIONS (1)
  - Therapeutic response shortened [None]
